FAERS Safety Report 5071457-0 (Version None)
Quarter: 2006Q3

REPORT INFORMATION
  Report Type: 
  Country: None (occurrence: None)
  Receive Date: 20060804
  Receipt Date: 20060728
  Transmission Date: 20061208
  Serious: Yes (Other)
  Sender: FDA-Public Use
  Company Number: US-GLAXOSMITHKLINE-A0614891A

PATIENT
  Age: 19 Year
  Sex: Female

DRUGS (1)
  1. PAXIL [Suspect]
     Dosage: 36TAB SINGLE DOSE
     Route: 048
     Dates: start: 20000401, end: 20000401

REACTIONS (1)
  - INTENTIONAL OVERDOSE [None]
